FAERS Safety Report 4906880-5 (Version None)
Quarter: 2006Q1

REPORT INFORMATION
  Report Type: 
  Country: None (occurrence: None)
  Receive Date: 20060207
  Receipt Date: 20060125
  Transmission Date: 20060701
  Serious: Yes (Hospitalization)
  Sender: FDA-Public Use
  Company Number: FR200601004160

PATIENT
  Age: 53 Year
  Sex: Male

DRUGS (3)
  1. GEMZAR [Suspect]
     Indication: BLADDER ADENOCARCINOMA STAGE UNSPECIFIED
     Dosage: INTRAVENOUS
     Route: 042
     Dates: end: 20041215
  2. CARBOPLATINE TEVA                /FRA/(CARBOPLATIN) [Concomitant]
  3. FUROSEMIDE [Concomitant]

REACTIONS (5)
  - ANAEMIA [None]
  - DEHYDRATION [None]
  - POST PROCEDURAL VOMITING [None]
  - RENAL FAILURE ACUTE [None]
  - THROMBOCYTOPENIA [None]
